FAERS Safety Report 9448380 (Version 2)
Quarter: 2013Q3

REPORT INFORMATION
  Report Type: Spontaneous
  Country: JP (occurrence: JP)
  Receive Date: 20130808
  Receipt Date: 20130905
  Transmission Date: 20140515
  Serious: Yes (Death, Hospitalization)
  Sender: FDA-Public Use
  Company Number: JP-BAYER-2013-071205

PATIENT
  Age: 65 Year
  Sex: Male

DRUGS (17)
  1. STIVARGA [Suspect]
     Indication: RECTAL CANCER
     Dosage: 160 MG, QD
     Route: 048
     Dates: start: 20130528, end: 20130625
  2. STIVARGA [Suspect]
     Indication: RECTAL CANCER
     Dosage: 120 MG, QD
     Route: 048
     Dates: start: 20130702, end: 20130813
  3. FUROSEMIDE [Concomitant]
     Indication: RECTAL CANCER
     Dosage: DAILY DOSE 10 MG
     Route: 048
     Dates: end: 20130818
  4. BARACLUDE [Concomitant]
     Dosage: DAILY DOSE .5 MG
     Route: 048
     Dates: end: 20130818
  5. HYPEN [Concomitant]
     Indication: RECTAL CANCER
     Dosage: DAILY DOSE 200 MG
     Route: 048
     Dates: end: 20130818
  6. TAKEPRON [Concomitant]
     Indication: PROPHYLAXIS
     Dosage: DAILY DOSE 30 MG
     Route: 048
     Dates: end: 20130603
  7. OXYCONTIN [Concomitant]
     Indication: RECTAL CANCER
     Dosage: DAILY DOSE 10 MG
     Route: 048
     Dates: end: 20130724
  8. OXYCONTIN [Concomitant]
     Indication: RECTAL CANCER
     Dosage: DAILY DOSE 20 MG
     Route: 048
     Dates: start: 20130725, end: 20130818
  9. GASLON [Concomitant]
     Indication: PROPHYLAXIS
     Dosage: DAILY DOSE 4 MG
     Route: 048
     Dates: end: 20130818
  10. ROHYPNOL [Concomitant]
     Dosage: DAILY DOSE 4 MG
     Route: 048
     Dates: end: 20130818
  11. CALCIUM [Concomitant]
     Indication: HYPOCALCAEMIA
     Dosage: DAILY DOSE 600 MG
     Route: 048
     Dates: end: 20130818
  12. CODEINE [Concomitant]
     Indication: RECTAL CANCER
     Dosage: DAILY DOSE 10 MG
     Route: 048
     Dates: end: 20130804
  13. CODEINE [Concomitant]
     Indication: RECTAL CANCER
     Dosage: DAILY DOSE 20 MG
     Route: 048
     Dates: end: 20130727
  14. OXINORM [Concomitant]
     Indication: RECTAL CANCER
     Dosage: DAILY DOSE 2.5 MG
     Route: 048
     Dates: end: 20130818
  15. FAMOSTAGINE [Concomitant]
     Indication: PROPHYLAXIS
     Dosage: DAILY DOSE 40 MG
     Route: 048
     Dates: start: 20130604, end: 20130818
  16. RINDERON [Concomitant]
     Indication: RECTAL CANCER
     Dosage: DAILY DOSE 4 MG
     Route: 048
     Dates: start: 20130726, end: 20130818
  17. PANITUMUMAB [Concomitant]
     Dosage: UNK

REACTIONS (6)
  - Pneumonia [Recovered/Resolved]
  - Rectal cancer [Fatal]
  - Palmar-plantar erythrodysaesthesia syndrome [Not Recovered/Not Resolved]
  - Aspartate aminotransferase increased [Not Recovered/Not Resolved]
  - Alanine aminotransferase increased [Not Recovered/Not Resolved]
  - Protein urine [Not Recovered/Not Resolved]
